FAERS Safety Report 5594972-X (Version None)
Quarter: 2007Q4

REPORT INFORMATION
  Report Type: 
  Country: None (occurrence: None)
  Receive Date: 20071218
  Receipt Date: 20070716
  Transmission Date: 20080405
  Serious: Yes (Hospitalization, Other)
  Sender: FDA-Public Use
  Company Number: 2006112071

PATIENT
  Age: 68 Year
  Sex: Female
  Weight: 104.8 kg

DRUGS (3)
  1. BEXTRA [Suspect]
     Dates: start: 20030927, end: 20031027
  2. CELEBREX [Suspect]
     Indication: ARTHRITIS
     Dosage: 400 MG (200 MG, 2 IN 1 D)
     Dates: start: 20031101
  3. VIOXX [Suspect]
     Dates: start: 20030113, end: 20030723

REACTIONS (1)
  - MYOCARDIAL INFARCTION [None]
